FAERS Safety Report 24292984 (Version 1)
Quarter: 2024Q3

REPORT INFORMATION
  Report Type: Spontaneous
  Country: US (occurrence: None)
  Receive Date: 20240906
  Receipt Date: 20240906
  Transmission Date: 20241017
  Serious: No
  Sender: DOMPE FARMACEUTICI
  Company Number: US-FARMAPROD-202311-3349

PATIENT
  Age: 51 Year
  Sex: Male

DRUGS (5)
  1. OXERVATE [Suspect]
     Active Substance: CENEGERMIN-BKBJ
     Indication: Neurotrophic keratopathy
     Route: 047
     Dates: start: 20230911
  2. VALTREX [Concomitant]
     Active Substance: VALACYCLOVIR HYDROCHLORIDE
  3. RESTASIS [Concomitant]
     Active Substance: CYCLOSPORINE
  4. MEN 50 PLUS MULTIVITAMIN [Concomitant]
  5. REFRESH RELIEVA PF [Concomitant]
     Active Substance: CARBOXYMETHYLCELLULOSE SODIUM\GLYCERIN
     Dosage: 0.5%-0.9%

REACTIONS (3)
  - Eye pain [Unknown]
  - Eyelid pain [Unknown]
  - Photophobia [Unknown]

NARRATIVE: CASE EVENT DATE: 20231001
